FAERS Safety Report 8115595-4 (Version None)
Quarter: 2012Q1

REPORT INFORMATION
  Report Type: 
  Country: None (occurrence: None)
  Receive Date: 20120201
  Receipt Date: 20120118
  Transmission Date: 20120608
  Serious: Yes (Hospitalization)
  Sender: FDA-Public Use
  Company Number: UTC-014769

PATIENT
  Age: 71 Year
  Sex: Female
  Weight: 74.5 kg

DRUGS (2)
  1. REMODULIN [Suspect]
     Indication: PULMONARY ARTERIAL HYPERTENSION
     Dosage: 17.28 UG/KG (0.012 UG/KG, 1 IN 1 MIN), SUBCUTANEOUS
     Route: 058
     Dates: start: 20111209
  2. REVATIO [Concomitant]

REACTIONS (2)
  - INFUSION SITE PAIN [None]
  - INFUSION SITE INFECTION [None]
